FAERS Safety Report 4685168-4 (Version None)
Quarter: 2005Q2

REPORT INFORMATION
  Report Type: 
  Country: None (occurrence: None)
  Receive Date: 20050608
  Receipt Date: 20050602
  Transmission Date: 20051028
  Serious: Yes (Other)
  Sender: FDA-Public Use
  Company Number: 200515113GDDC

PATIENT
  Age: 84 Year
  Sex: Male
  Weight: 68 kg

DRUGS (6)
  1. LASIX [Suspect]
  2. AMIODARONE HYDROCHLORIDE [Suspect]
     Indication: ARRHYTHMIA
     Route: 048
     Dates: start: 19941101, end: 19941105
  3. RANITIDINE [Suspect]
     Route: 048
  4. CAPOTEN [Suspect]
     Route: 048
  5. DIABEX [Suspect]
  6. DIAMICRON [Suspect]

REACTIONS (4)
  - ALANINE AMINOTRANSFERASE INCREASED [None]
  - ASPARTATE AMINOTRANSFERASE INCREASED [None]
  - BLOOD BILIRUBIN INCREASED [None]
  - HEPATIC FUNCTION ABNORMAL [None]
